FAERS Safety Report 5694245-0 (Version None)
Quarter: 2008Q2

REPORT INFORMATION
  Report Type: 
  Country: None (occurrence: None)
  Receive Date: 20080402
  Receipt Date: 20080321
  Transmission Date: 20081010
  Serious: Yes (Hospitalization)
  Sender: FDA-Public Use
  Company Number: E2020-02513-SPO-JP

PATIENT
  Age: 68 Year
  Sex: Female

DRUGS (5)
  1. ARICEPT [Suspect]
     Indication: DEMENTIA
     Dosage: 5 MG, 1 N 1 D, ORAL
     Route: 048
     Dates: start: 20040801, end: 20070701
  2. ARICEPT [Suspect]
     Indication: DEMENTIA
     Dosage: 5 MG, 1 N 1 D, ORAL
     Route: 048
     Dates: start: 20070801, end: 20070801
  3. AKINETON [Concomitant]
  4. SINEMET [Concomitant]
  5. PRAMIPEXOLE DIHYDROCHLORIDE [Concomitant]

REACTIONS (1)
  - PARKINSONISM [None]
